FAERS Safety Report 5134486-4 (Version None)
Quarter: 2006Q4

REPORT INFORMATION
  Report Type: 
  Country: None (occurrence: None)
  Receive Date: 20061023
  Receipt Date: 20061023
  Transmission Date: 20070319
  Serious: Yes (Hospitalization)
  Sender: FDA-Public Use
  Company Number: None

PATIENT
  Sex: Male
  Weight: 60.9 kg

DRUGS (2)
  1. GLEEVEC [Suspect]
     Indication: PROSTATE CANCER METASTATIC
     Dosage: 400MG QD PO X 10 DAYS Q 21 DAYS
     Dates: start: 20061009, end: 20061018
  2. TAXOTERE [Suspect]
     Indication: PROSTATE CANCER METASTATIC
     Dosage: 100 MG IV Q 21 DAYS
     Dates: start: 20061012

REACTIONS (4)
  - ATRIAL FIBRILLATION [None]
  - DIZZINESS [None]
  - HYPOTENSION [None]
  - PALPITATIONS [None]
